FAERS Safety Report 7952945-3 (Version None)
Quarter: 2011Q4

REPORT INFORMATION
  Report Type: 
  Country: None (occurrence: None)
  Receive Date: 20111201
  Receipt Date: 20111122
  Transmission Date: 20120403
  Serious: Yes (Other)
  Sender: FDA-Public Use
  Company Number: BE-JNJFOC-20111111495

PATIENT
  Sex: Female

DRUGS (3)
  1. ENOXAPARIN SODIUM [Concomitant]
  2. XARELTO [Suspect]
     Indication: ORTHOPEDIC PROCEDURE
     Route: 065
  3. ENOXAPARIN SODIUM [Concomitant]

REACTIONS (1)
  - PULMONARY EMBOLISM [None]
